FAERS Safety Report 4390635-7 (Version None)
Quarter: 2004Q2

REPORT INFORMATION
  Report Type: 
  Country: None (occurrence: None)
  Receive Date: 20040630
  Receipt Date: 20040609
  Transmission Date: 20050107
  Serious: No
  Sender: FDA-Public Use
  Company Number: 1-11399400

PATIENT
  Age: 6 Month
  Sex: Female
  Weight: 9.9791 kg

DRUGS (5)
  1. ORAPRED [Suspect]
     Indication: ASTHMA
     Dosage: 3.7 ML, ONCE, ORAL
     Route: 048
     Dates: start: 20040227, end: 20040227
  2. AMOXICILLIN SODIUM + POTASSIUM CLAVULANATE [Concomitant]
  3. LEVOSALBUTAMOL [Concomitant]
  4. BUDESONIDE [Concomitant]
  5. PIMECROLIMUS [Concomitant]

REACTIONS (2)
  - ANAPHYLACTOID REACTION [None]
  - URTICARIA [None]
